FAERS Safety Report 14223136 (Version 1)
Quarter: 2017Q4

REPORT INFORMATION
  Report Type: Spontaneous
  Country: US (occurrence: US)
  Receive Date: 20171124
  Receipt Date: 20171124
  Transmission Date: 20180321
  Serious: Yes (Hospitalization)
  Sender: FDA-Public Use
  Company Number: US-JNJFOC-20171029218

PATIENT
  Age: 56 Year
  Sex: Male

DRUGS (21)
  1. BYETTA [Concomitant]
     Active Substance: EXENATIDE
     Route: 065
  2. LANTUS [Concomitant]
     Active Substance: INSULIN GLARGINE
     Route: 065
  3. NOVOLOG [Concomitant]
     Active Substance: INSULIN ASPART
     Route: 065
  4. CITALOPRAM [Concomitant]
     Active Substance: CITALOPRAM HYDROBROMIDE
     Route: 065
  5. HCTZ [Concomitant]
     Active Substance: HYDROCHLOROTHIAZIDE
     Route: 065
  6. METHOCARBAMOL. [Concomitant]
     Active Substance: METHOCARBAMOL
     Route: 065
  7. METOPROLOL. [Concomitant]
     Active Substance: METOPROLOL
     Route: 065
  8. BENZONATATE. [Concomitant]
     Active Substance: BENZONATATE
     Route: 065
  9. VENLAFAXINE [Concomitant]
     Active Substance: VENLAFAXINE HYDROCHLORIDE
     Route: 065
  10. ATORVASTATIN [Concomitant]
     Active Substance: ATORVASTATIN
     Route: 065
  11. GLIMEPIRIDE. [Concomitant]
     Active Substance: GLIMEPIRIDE
     Route: 065
  12. WARFARIN [Concomitant]
     Active Substance: WARFARIN
     Route: 065
  13. CRESTOR [Concomitant]
     Active Substance: ROSUVASTATIN CALCIUM
     Route: 065
  14. METFORMIN [Concomitant]
     Active Substance: METFORMIN HYDROCHLORIDE
     Route: 065
  15. REMICADE [Suspect]
     Active Substance: INFLIXIMAB
     Indication: PSORIASIS
     Route: 042
     Dates: start: 20170905, end: 20171023
  16. ALBUTEROL. [Concomitant]
     Active Substance: ALBUTEROL
     Route: 065
  17. HUMALOG [Concomitant]
     Active Substance: INSULIN LISPRO
     Route: 065
  18. CEFPODOXIME [Concomitant]
     Active Substance: CEFPODOXIME
     Route: 065
  19. LORAZEPAM. [Concomitant]
     Active Substance: LORAZEPAM
     Route: 065
  20. MELOXICAM. [Concomitant]
     Active Substance: MELOXICAM
     Route: 065
  21. FOLIC ACID. [Concomitant]
     Active Substance: FOLIC ACID
     Route: 065

REACTIONS (2)
  - Cardiac failure congestive [Unknown]
  - Pneumonia [Unknown]

NARRATIVE: CASE EVENT DATE: 20171017
